FAERS Safety Report 7487931-3 (Version None)
Quarter: 2011Q2

REPORT INFORMATION
  Report Type: 
  Country: None (occurrence: None)
  Receive Date: 20110518
  Receipt Date: 20110414
  Transmission Date: 20111010
  Serious: Yes (Other)
  Sender: FDA-Public Use
  Company Number: US-BAYER-201042081NA

PATIENT
  Age: 18 Year
  Sex: Female
  Weight: 68 kg

DRUGS (9)
  1. YAZ [Suspect]
     Indication: CONTRACEPTION
  2. YASMIN [Suspect]
  3. CALCIUM PLUS [CALCIUM] [Concomitant]
     Dosage: UNK UNK, QD
     Route: 048
  4. YASMIN [Suspect]
     Indication: CONTRACEPTION
  5. YAZ [Suspect]
     Indication: PREMENSTRUAL SYNDROME
     Dosage: QD
     Route: 048
     Dates: start: 20050401, end: 20050701
  6. YASMIN [Suspect]
     Indication: DYSMENORRHOEA
     Dosage: QD
     Route: 048
     Dates: start: 20051001, end: 20070601
  7. YASMIN [Suspect]
     Indication: PREMENSTRUAL SYNDROME
  8. YAZ [Suspect]
  9. YAZ [Suspect]
     Indication: DYSMENORRHOEA

REACTIONS (3)
  - GALLBLADDER INJURY [None]
  - PAIN [None]
  - CHOLECYSTITIS [None]
